FAERS Safety Report 5234043-5 (Version None)
Quarter: 2007Q1

REPORT INFORMATION
  Report Type: 
  Country: None (occurrence: None)
  Receive Date: 20070208
  Receipt Date: 20070206
  Transmission Date: 20070707
  Serious: Yes (Life-Threatening, Hospitalization)
  Sender: FDA-Public Use
  Company Number: US-BOEHRINGER INGELHEIM PHARMACEUTICALS, INC.-2007-DE-00735GD

PATIENT
  Age: 36 Year
  Sex: Male

DRUGS (4)
  1. CLONIDINE [Suspect]
     Dosage: ^HANDFUL^
     Route: 048
  2. SUCCINYLCHOLINE CHLORIDE [Suspect]
     Indication: INTUBATION
     Route: 042
  3. NARCAN [Concomitant]
  4. ETOMIDATE [Concomitant]
     Route: 042

REACTIONS (4)
  - DRUG ABUSER [None]
  - MENTAL STATUS CHANGES [None]
  - MUSCLE RIGIDITY [None]
  - OVERDOSE [None]
